FAERS Safety Report 7621028-4 (Version None)
Quarter: 2011Q3

REPORT INFORMATION
  Report Type: 
  Country: None (occurrence: None)
  Receive Date: 20110719
  Receipt Date: 20101025
  Transmission Date: 20111222
  Serious: No
  Sender: FDA-Public Use
  Company Number: US-KINGPHARMUSA00001-K201001315

PATIENT
  Sex: Female

DRUGS (3)
  1. LEVOXYL [Suspect]
     Indication: THYROID HORMONE REPLACEMENT THERAPY
     Dosage: 100 MCG, QD
     Route: 048
     Dates: start: 20100901
  2. CRESTOR [Concomitant]
  3. LOTREL [Concomitant]

REACTIONS (2)
  - FLATULENCE [None]
  - RASH PRURITIC [None]
